FAERS Safety Report 5214352-6 (Version None)
Quarter: 2007Q1

REPORT INFORMATION
  Report Type: 
  Country: None (occurrence: None)
  Receive Date: 20070122
  Receipt Date: 20070110
  Transmission Date: 20070707
  Serious: Yes (Hospitalization)
  Sender: FDA-Public Use
  Company Number: CA-ABBOTT-07P-028-0355748-00

PATIENT
  Sex: Female
  Weight: 47.67 kg

DRUGS (13)
  1. HUMIRA [Suspect]
     Indication: RHEUMATOID ARTHRITIS
     Route: 058
     Dates: start: 20060117
  2. METHOTREXATE [Suspect]
     Indication: RHEUMATOID ARTHRITIS
  3. ROSIGLITAZONE MALEATE [Concomitant]
     Indication: DIABETES MELLITUS
     Route: 048
  4. METFORMIN HCL [Concomitant]
     Indication: DIABETES MELLITUS
     Dosage: 1 GRAM IN AM, 500 MG AT LUNCH, 1 GRAM IN PM
     Route: 048
  5. CRESTOR [Concomitant]
     Indication: HYPERCHOLESTEROLAEMIA
     Route: 048
  6. LISINOPRIL [Concomitant]
     Indication: HYPERTENSION
     Route: 048
  7. LEVOTHYROXINE SODIUM [Concomitant]
     Indication: HYPOTHYROIDISM
     Route: 048
  8. VENLAFAXINE HYDROCHLORIDE [Concomitant]
     Indication: DEPRESSION
     Route: 048
  9. SERETIDE MITE [Concomitant]
     Indication: ASTHMA
     Route: 055
  10. FOLIC ACID [Concomitant]
     Indication: DRUG USE FOR UNKNOWN INDICATION
     Route: 048
  11. PRIMROSE OIL [Concomitant]
     Indication: DRUG USE FOR UNKNOWN INDICATION
     Route: 048
  12. REFRESH TEARS [Concomitant]
     Indication: DRUG USE FOR UNKNOWN INDICATION
     Route: 047
  13. PARACETAMOL [Concomitant]
     Indication: DRUG USE FOR UNKNOWN INDICATION
     Route: 048

REACTIONS (3)
  - HAEMATEMESIS [None]
  - HEPATOCELLULAR DAMAGE [None]
  - OESOPHAGEAL HAEMORRHAGE [None]
